FAERS Safety Report 5259551-2 (Version None)
Quarter: 2007Q1

REPORT INFORMATION
  Report Type: 
  Country: None (occurrence: None)
  Receive Date: 20070306
  Receipt Date: 20070220
  Transmission Date: 20070707
  Serious: Yes (Death)
  Sender: FDA-Public Use
  Company Number: T200700240

PATIENT
  Age: 42 Year
  Sex: Male

DRUGS (10)
  1. METHADONE (METHADONE  HYDROCHLORIDE) TABLET, 10MG [Suspect]
     Indication: NEURALGIA
     Dosage: 3-4 TABLETS PRN, ORAL
     Route: 048
     Dates: start: 20040511, end: 20040512
  2. NEURONTIN [Concomitant]
  3. MISGNDAL [Concomitant]
  4. KLONOPIN [Concomitant]
  5. PIX [Concomitant]
  6. PREDNISONE TAB [Concomitant]
  7. ASOMDHOZINIL [Concomitant]
  8. HYDROXYZINE HCL [Concomitant]
  9. CERYZAN [Concomitant]
  10. DEMOZAPAM [Concomitant]

REACTIONS (1)
  - MULTIPLE DRUG OVERDOSE [None]
